FAERS Safety Report 23406447 (Version 1)
Quarter: 2024Q1

REPORT INFORMATION
  Report Type: Spontaneous
  Country: KR (occurrence: KR)
  Receive Date: 20240116
  Receipt Date: 20240116
  Transmission Date: 20240409
  Serious: Yes (Other)
  Sender: FDA-Public Use
  Company Number: KR-GLAXOSMITHKLINE-KR2024GSK006624

PATIENT

DRUGS (3)
  1. VENTOLIN [Suspect]
     Active Substance: ALBUTEROL SULFATE
     Indication: Lung adenocarcinoma
     Dosage: 1 DF
     Dates: start: 20220303, end: 20220303
  2. ACETAMINOPHEN AND CODEINE [Suspect]
     Active Substance: ACETAMINOPHEN\CODEINE PHOSPHATE
     Indication: Lung adenocarcinoma
     Dosage: 1 DF; 8
     Dates: start: 20220305, end: 20220307
  3. ERDOSTEINE [Suspect]
     Active Substance: ERDOSTEINE
     Indication: Lung adenocarcinoma
     Dosage: 300 MG; 12
     Dates: start: 20220305, end: 20220306

REACTIONS (2)
  - Dyspnoea [Recovered/Resolved]
  - Product use in unapproved indication [Unknown]

NARRATIVE: CASE EVENT DATE: 20220303
